FAERS Safety Report 5096540-5 (Version None)
Quarter: 2006Q3

REPORT INFORMATION
  Report Type: 
  Country: None (occurrence: None)
  Receive Date: 20060830
  Receipt Date: 20060821
  Transmission Date: 20061208
  Serious: Yes (Hospitalization, Other)
  Sender: FDA-Public Use
  Company Number: 2006048490

PATIENT
  Age: 9 Year
  Sex: Female

DRUGS (6)
  1. SILDENAFIL CITRATE [Suspect]
     Indication: PULMONARY HYPERTENSION
     Dosage: 150 MG (150 MG, 1 IN 1 D); ORAL
     Route: 048
     Dates: start: 20030101
  2. CAPTOPRIL [Concomitant]
  3. FUROSEMIDE [Concomitant]
  4. DIGOXIN [Concomitant]
  5. MAREVAN FORTE (WARFARIN  SODIUM) [Concomitant]
  6. ALDACTONE [Concomitant]

REACTIONS (5)
  - CARDIAC FAILURE [None]
  - CARDIOMEGALY [None]
  - DISEASE PROGRESSION [None]
  - PULMONARY HYPERTENSION [None]
  - RIGHT VENTRICULAR FAILURE [None]
